FAERS Safety Report 10878336 (Version 1)
Quarter: 2015Q1

REPORT INFORMATION
  Report Type: Report from Study
  Country: US (occurrence: US)
  Receive Date: 20150302
  Receipt Date: 20150302
  Transmission Date: 20150721
  Serious: No
  Sender: FDA-Public Use
  Company Number: US-ABBVIE-15P-163-1351847-00

PATIENT
  Sex: Male

DRUGS (1)
  1. ANDROGEL [Suspect]
     Active Substance: TESTOSTERONE
     Indication: PRODUCT USED FOR UNKNOWN INDICATION
     Route: 065

REACTIONS (11)
  - Memory impairment [Unknown]
  - Asthenia [Unknown]
  - Disturbance in attention [Unknown]
  - Libido decreased [Unknown]
  - Erectile dysfunction [Unknown]
  - Psychiatric symptom [Unknown]
  - Depressed mood [Unknown]
  - Performance status decreased [Unknown]
  - Eunuchoidism [Unknown]
  - Apathy [Unknown]
  - Alopecia [Unknown]
